FAERS Safety Report 24573970 (Version 2)
Quarter: 2024Q4

REPORT INFORMATION
  Report Type: Report from Study
  Country: US (occurrence: US)
  Receive Date: 20241104
  Receipt Date: 20241201
  Transmission Date: 20250114
  Serious: Yes (Disabling, Other)
  Sender: AMGEN
  Company Number: US-HORIZON THERAPEUTICS-HZN-2023-007185

PATIENT
  Age: 58 Year
  Sex: Female

DRUGS (11)
  1. TEPEZZA [Suspect]
     Active Substance: TEPROTUMUMAB-TRBW
     Indication: Endocrine ophthalmopathy
     Dosage: UNK, FIRST INFUSION
     Route: 042
     Dates: start: 20230617
  2. TEPEZZA [Suspect]
     Active Substance: TEPROTUMUMAB-TRBW
     Indication: Graves^ disease
     Dosage: 933 MILLIGRAM, UNKNOWN INFUSION, IV INFUSION OVER 60MIN
     Route: 042
     Dates: start: 2023
  3. TEPEZZA [Suspect]
     Active Substance: TEPROTUMUMAB-TRBW
     Dosage: UNK, 7TH INFUSION
     Route: 042
     Dates: start: 20231031
  4. TEPEZZA [Suspect]
     Active Substance: TEPROTUMUMAB-TRBW
     Dosage: UNK, 8TH INFUSION
     Route: 042
     Dates: start: 20231121, end: 20231121
  5. PREDNISONE [Suspect]
     Active Substance: PREDNISONE
     Indication: Product used for unknown indication
     Dosage: 60 MILLIGRAM (60MG, 10 DAYS)
     Route: 048
     Dates: start: 202303
  6. PREDNISONE [Suspect]
     Active Substance: PREDNISONE
     Dosage: 40 MILLIGRAM (40MG 10 DAYS)
     Route: 048
  7. PREDNISONE [Suspect]
     Active Substance: PREDNISONE
     Dosage: 20 MILLIGRAM (20MG 10 DAYS)
     Route: 048
  8. PREDNISONE [Suspect]
     Active Substance: PREDNISONE
     Dosage: 10 MILLIGRAM (10MG 10 DAYS)
     Route: 048
  9. LORAZEPAM [Concomitant]
     Active Substance: LORAZEPAM
     Dosage: UNK
     Route: 065
  10. METHIMAZOLE [Concomitant]
     Active Substance: METHIMAZOLE
     Dosage: UNK, QD
     Route: 065
  11. FAMOTIDINE [Concomitant]
     Active Substance: FAMOTIDINE
     Dosage: 10 MILLIGRAM, BID
     Route: 048
     Dates: start: 202303

REACTIONS (19)
  - Deafness permanent [Not Recovered/Not Resolved]
  - Endocrine ophthalmopathy [Unknown]
  - Graves^ disease [Unknown]
  - Ear discomfort [Unknown]
  - Adverse drug reaction [Unknown]
  - Madarosis [Unknown]
  - Diarrhoea [Not Recovered/Not Resolved]
  - Alopecia [Recovering/Resolving]
  - Muscle spasms [Recovering/Resolving]
  - Tinnitus [Recovering/Resolving]
  - Pain [Unknown]
  - Emotional distress [Unknown]
  - Anxiety [Unknown]
  - Impaired quality of life [Unknown]
  - Discomfort [Unknown]
  - Product use complaint [Unknown]
  - Headache [Unknown]
  - Ageusia [Unknown]
  - Onychoclasis [Recovering/Resolving]

NARRATIVE: CASE EVENT DATE: 20230101
